FAERS Safety Report 9611074 (Version 1)
Quarter: 2013Q4

REPORT INFORMATION
  Report Type: Report from Study
  Country: US (occurrence: US)
  Receive Date: 20131009
  Receipt Date: 20131009
  Transmission Date: 20140711
  Serious: Yes (Hospitalization)
  Sender: FDA-Public Use
  Company Number: PHHO2013US012879

PATIENT
  Sex: Female
  Weight: 67.5 kg

DRUGS (3)
  1. GILENYA [Suspect]
     Indication: RELAPSING-REMITTING MULTIPLE SCLEROSIS
     Dosage: 0.5 MG, QD
     Route: 048
     Dates: start: 20130226, end: 20130926
  2. GILENYA [Suspect]
     Dosage: 0.5 MG, QD
     Route: 048
     Dates: start: 20131002
  3. IBUPROFEN [Suspect]
     Indication: HEADACHE
     Dosage: 200-800 MG, 1-2 D
     Route: 048
     Dates: end: 20130926

REACTIONS (2)
  - Peritonitis pneumococcal [Recovering/Resolving]
  - Gastric ulcer perforation [Recovered/Resolved]
